FAERS Safety Report 13031118 (Version 3)
Quarter: 2017Q1

REPORT INFORMATION
  Report Type: Spontaneous
  Country: JP (occurrence: JP)
  Receive Date: 20161215
  Receipt Date: 20170208
  Transmission Date: 20170428
  Serious: Yes (Death, Hospitalization, Other)
  Sender: FDA-Public Use
  Company Number: JP-ELI_LILLY_AND_COMPANY-JP201612001488

PATIENT
  Age: 70 Year
  Sex: Male
  Weight: 52.8 kg

DRUGS (2)
  1. DOCETAXEL. [Concomitant]
     Active Substance: DOCETAXEL
     Indication: LUNG SQUAMOUS CELL CARCINOMA RECURRENT
     Dosage: 90 MG, OTHER
     Route: 042
     Dates: start: 20161125, end: 20161125
  2. CYRAMZA [Suspect]
     Active Substance: RAMUCIRUMAB
     Indication: LUNG SQUAMOUS CELL CARCINOMA RECURRENT
     Dosage: 500 MG, OTHER
     Route: 042
     Dates: start: 20161125, end: 20161125

REACTIONS (7)
  - Multiple organ dysfunction syndrome [Fatal]
  - Thrombocytopenia [Unknown]
  - Febrile neutropenia [Fatal]
  - Pneumonia [Unknown]
  - Hypoglycaemia [Unknown]
  - Disseminated intravascular coagulation [Unknown]
  - Pyrexia [Recovered/Resolved]

NARRATIVE: CASE EVENT DATE: 2016
